FAERS Safety Report 10788822 (Version 1)
Quarter: 2015Q1

REPORT INFORMATION
  Report Type: Report from Study
  Country: US (occurrence: US)
  Receive Date: 20150212
  Receipt Date: 20150212
  Transmission Date: 20150721
  Serious: Yes (Death)
  Sender: FDA-Public Use
  Company Number: US-ASTELLAS-2015US004392

PATIENT
  Age: 73 Year
  Sex: Female

DRUGS (26)
  1. KETOROLAC [Suspect]
     Active Substance: KETOROLAC\KETOROLAC TROMETHAMINE
     Indication: PRODUCT USED FOR UNKNOWN INDICATION
     Dosage: UNK UNK, UNKNOWN FREQ.
     Route: 065
  2. DICYCLOVERINE HYDROCHLORIDE [Concomitant]
     Active Substance: DICYCLOMINE HYDROCHLORIDE
     Indication: PRODUCT USED FOR UNKNOWN INDICATION
     Dosage: UNK UNK, UNKNOWN FREQ.
     Route: 065
  3. LASIX [Concomitant]
     Active Substance: FUROSEMIDE
     Route: 048
  4. PLAVIX [Concomitant]
     Active Substance: CLOPIDOGREL BISULFATE
     Indication: PRODUCT USED FOR UNKNOWN INDICATION
     Route: 065
  5. AVASTIN [Suspect]
     Active Substance: BEVACIZUMAB
     Route: 042
  6. MEGACE [Concomitant]
     Active Substance: MEGESTROL ACETATE
     Indication: PRODUCT USED FOR UNKNOWN INDICATION
     Dosage: UNK UNK, UNKNOWN FREQ.
     Route: 065
  7. LASIX [Concomitant]
     Active Substance: FUROSEMIDE
     Indication: PRODUCT USED FOR UNKNOWN INDICATION
     Route: 048
  8. NEXIUM [Concomitant]
     Active Substance: ESOMEPRAZOLE MAGNESIUM
     Indication: PRODUCT USED FOR UNKNOWN INDICATION
     Dosage: UNK UNK, UNKNOWN FREQ.
     Route: 065
  9. NOVOLIN [Concomitant]
     Active Substance: INSULIN HUMAN
     Dosage: 28 UNITS IN MORNING AND 15 UNITS AT NIGHT, TWICE DAILY
     Route: 058
  10. DEXAMETHASONE. [Concomitant]
     Active Substance: DEXAMETHASONE
     Indication: PRODUCT USED FOR UNKNOWN INDICATION
     Route: 065
  11. ARANESP [Concomitant]
     Active Substance: DARBEPOETIN ALFA
     Indication: PRODUCT USED FOR UNKNOWN INDICATION
     Route: 058
  12. ERLOTINIB [Suspect]
     Active Substance: ERLOTINIB
     Indication: LYMPHOMA
  13. AVASTIN [Suspect]
     Active Substance: BEVACIZUMAB
     Indication: LYMPHOMA
     Route: 042
  14. AMLODIPINE [Concomitant]
     Active Substance: AMLODIPINE BESYLATE
     Indication: PRODUCT USED FOR UNKNOWN INDICATION
     Route: 048
  15. NOVOLIN [Concomitant]
     Active Substance: INSULIN HUMAN
     Indication: PRODUCT USED FOR UNKNOWN INDICATION
     Dosage: 2 DR, ONCE DAILY
     Route: 058
  16. NORVASC [Concomitant]
     Active Substance: AMLODIPINE BESYLATE
     Indication: PRODUCT USED FOR UNKNOWN INDICATION
     Route: 065
  17. AVASTIN [Suspect]
     Active Substance: BEVACIZUMAB
     Indication: HEPATOBILIARY CANCER
     Route: 042
     Dates: start: 20080205
  18. HYDRALAZINE [Concomitant]
     Active Substance: HYDRALAZINE HYDROCHLORIDE
     Indication: PRODUCT USED FOR UNKNOWN INDICATION
     Route: 048
  19. HYDROCHLOROTHIAZIDE. [Concomitant]
     Active Substance: HYDROCHLOROTHIAZIDE
     Indication: PRODUCT USED FOR UNKNOWN INDICATION
     Route: 065
  20. BENTYL [Concomitant]
     Active Substance: DICYCLOMINE HYDROCHLORIDE
     Indication: PRODUCT USED FOR UNKNOWN INDICATION
     Route: 065
  21. ROBAXIN [Concomitant]
     Active Substance: METHOCARBAMOL
     Indication: MUSCULOSKELETAL PAIN
     Dosage: UNK UNK, ONCE DAILY
     Route: 065
  22. ERLOTINIB [Suspect]
     Active Substance: ERLOTINIB
     Indication: HEPATIC CANCER
  23. ERLOTINIB [Suspect]
     Active Substance: ERLOTINIB
     Indication: HEPATOBILIARY CANCER
     Route: 048
  24. ALPRAZOLAM. [Concomitant]
     Active Substance: ALPRAZOLAM
     Indication: PRODUCT USED FOR UNKNOWN INDICATION
     Dosage: 0.5 MG, ONCE DAILY
     Route: 048
  25. NOVOLIN [Concomitant]
     Active Substance: INSULIN HUMAN
     Dosage: 25 UNITS IN MORNING AND 20 UNITS IN EVENING, TWICE DAILY
     Route: 058
  26. DARVOCET [Concomitant]
     Active Substance: ACETAMINOPHEN\PROPOXYPHENE HYDROCHLORIDE
     Indication: ARTHRITIS
     Route: 048

REACTIONS (16)
  - Dizziness [Unknown]
  - Depression [Unknown]
  - Death [Fatal]
  - Fluid intake reduced [Unknown]
  - Oedema [Unknown]
  - Nausea [Unknown]
  - Dry mouth [Unknown]
  - Sinus congestion [Unknown]
  - Dysphagia [Unknown]
  - Hyponatraemia [Unknown]
  - Dehydration [Unknown]
  - Musculoskeletal pain [Unknown]
  - Palpitations [Unknown]
  - Asthenia [Unknown]
  - Balance disorder [Unknown]
  - Liver disorder [Unknown]

NARRATIVE: CASE EVENT DATE: 20100214
